FAERS Safety Report 6800862-4 (Version None)
Quarter: 2010Q2

REPORT INFORMATION
  Report Type: 
  Country: None (occurrence: None)
  Receive Date: 20100629
  Receipt Date: 20100618
  Transmission Date: 20101027
  Serious: Yes (Other)
  Sender: FDA-Public Use
  Company Number: AU-BRISTOL-MYERS SQUIBB COMPANY-15166465

PATIENT
  Sex: Female
  Weight: 2 kg

DRUGS (3)
  1. METFORMIN HCL [Suspect]
     Route: 064
  2. INSULIN ASPART [Concomitant]
  3. ISOPHANE INSULIN [Concomitant]

REACTIONS (2)
  - HYPOGLYCAEMIA NEONATAL [None]
  - SMALL FOR DATES BABY [None]
